FAERS Safety Report 16919180 (Version 2)
Quarter: 2019Q4

REPORT INFORMATION
  Report Type: Spontaneous
  Country: US (occurrence: US)
  Receive Date: 20191015
  Receipt Date: 20191022
  Transmission Date: 20200122
  Serious: No
  Sender: FDA-Public Use
  Company Number: US-PFIZER INC-2015059328

PATIENT
  Age: 72 Year
  Sex: Male
  Weight: 112 kg

DRUGS (25)
  1. LYRICA [Suspect]
     Active Substance: PREGABALIN
     Dosage: 50 MG, 1 CAPSULE THREE TIMES DAILY
     Route: 048
     Dates: end: 20191008
  2. SENOKOT [Concomitant]
     Active Substance: SENNOSIDES
     Dosage: UNK
  3. OMEPRAZOLE. [Concomitant]
     Active Substance: OMEPRAZOLE
     Dosage: 20 MG, 1 TABLET TWO TIMES DAILY
     Route: 048
     Dates: start: 20160815
  4. COUMADIN [Concomitant]
     Active Substance: WARFARIN SODIUM
     Dosage: ONE-HALF TABLET OF 2 MG, ONCE DAILY (MWF)
     Route: 048
  5. BACLOFEN. [Concomitant]
     Active Substance: BACLOFEN
     Dosage: UNK
  6. VITAMIN D3 [Concomitant]
     Active Substance: CHOLECALCIFEROL
     Dosage: 1000 IU, 1 TABLET ONCE DAILY
     Route: 048
  7. KLOR-CON [Concomitant]
     Active Substance: POTASSIUM CHLORIDE
     Dosage: 20 MEQ, UNK
     Route: 048
     Dates: start: 20150831, end: 20161207
  8. MORPHINE [Concomitant]
     Active Substance: MORPHINE
     Indication: PAIN
     Dosage: 0.5 ML (10 MG), EVERY 4 HOURS AS NEEDED
     Route: 048
  9. MORPHINE [Concomitant]
     Active Substance: MORPHINE
     Indication: BREAKTHROUGH PAIN
  10. LYRICA [Suspect]
     Active Substance: PREGABALIN
     Dosage: 50 MG, 1 CAPSULE THREE TIMES DAILY
     Route: 048
     Dates: start: 20160815
  11. LYRICA [Suspect]
     Active Substance: PREGABALIN
     Dosage: 50 MG, 1 CAPSULE THREE TIMES DAILY
     Route: 048
     Dates: start: 20161207
  12. LYRICA [Suspect]
     Active Substance: PREGABALIN
     Dosage: DOUBLING UP 200 MG ONCE A DAY AS NEEDED
     Route: 048
  13. AMLODIPINE [Concomitant]
     Active Substance: AMLODIPINE BESYLATE
     Dosage: UNK
  14. VITAMIN B12 [Concomitant]
     Active Substance: CYANOCOBALAMIN
     Dosage: 1000 UG, ONCE DAILY
     Route: 048
  15. LYRICA [Suspect]
     Active Substance: PREGABALIN
     Indication: TRIGEMINAL NEURALGIA
     Dosage: 250 MG, TID (THREE TIMES A DAY, 1 CAPSULE OF 200 MG ALONG WITH 1 CAPSULE OF 50 MG)
     Route: 048
     Dates: start: 20150107
  16. LYRICA [Suspect]
     Active Substance: PREGABALIN
     Dosage: 50 MG, 1 CAPSULE THREE TIMES DAILY
     Route: 048
     Dates: start: 20170815
  17. ZOLOFT [Concomitant]
     Active Substance: SERTRALINE HYDROCHLORIDE
     Dosage: 50 MG, 1 TABLET NIGHTLY
     Route: 048
     Dates: start: 20160815
  18. LYRICA [Suspect]
     Active Substance: PREGABALIN
     Dosage: 200 MG, ONCE A DAY AS NEEDED IF PAIN GETS TOO BAD
     Route: 048
  19. COUMADIN [Concomitant]
     Active Substance: WARFARIN SODIUM
     Dosage: 1 TABLET OF 2 MG, ONCE DAILY (TUETHUSATSUN)
     Route: 048
  20. LAMICTAL [Concomitant]
     Active Substance: LAMOTRIGINE
     Dosage: UNK
  21. LASIX [Concomitant]
     Active Substance: FUROSEMIDE
     Dosage: 20 MG, 1 TABLET TWO TIMES DAILY
     Route: 048
     Dates: start: 20150703, end: 20161207
  22. LYRICA [Suspect]
     Active Substance: PREGABALIN
     Dosage: 200 MG, 1 CAPSULE THREE TIMES DAILY
     Route: 048
     Dates: start: 20170815
  23. LIORESAL [Concomitant]
     Active Substance: BACLOFEN
     Dosage: 5 MG, 1 TABLET THREE TIMES DAILY
     Route: 048
     Dates: start: 20160118
  24. LYRICA [Suspect]
     Active Substance: PREGABALIN
     Indication: NEUROPATHY PERIPHERAL
     Dosage: 250 MG, TID (THREE TIMES A DAY, 1 CAPSULE OF 200 MG ALONG WITH 1 CAPSULE OF 50 MG)
     Route: 048
     Dates: start: 20150107
  25. FLOMAX [Concomitant]
     Active Substance: TAMSULOSIN HYDROCHLORIDE
     Dosage: 0.4 MG, 1 CAPSULE EVERY MORNING AFTER BREAKFAST
     Route: 048
     Dates: start: 20150910

REACTIONS (4)
  - Drug withdrawal syndrome [Not Recovered/Not Resolved]
  - Prescribed overdose [Unknown]
  - Pain [Not Recovered/Not Resolved]
  - Intentional product use issue [Unknown]

NARRATIVE: CASE EVENT DATE: 20150107
